FAERS Safety Report 22193257 (Version 1)
Quarter: 2023Q2

REPORT INFORMATION
  Report Type: Spontaneous
  Country: IT (occurrence: IT)
  Receive Date: 20230410
  Receipt Date: 20230410
  Transmission Date: 20230721
  Serious: Yes (Other)
  Sender: FDA-Public Use
  Company Number: None

PATIENT
  Age: 64 Year
  Sex: Female
  Weight: 65 kg

DRUGS (3)
  1. CIMZIA [Suspect]
     Active Substance: CERTOLIZUMAB PEGOL
     Indication: Ankylosing spondylitis
     Dosage: 200 MG
     Route: 058
     Dates: start: 20220427, end: 20221215
  2. CIMZIA [Suspect]
     Active Substance: CERTOLIZUMAB PEGOL
     Indication: Off label use
  3. SULFASALAZINE [Concomitant]
     Active Substance: SULFASALAZINE
     Indication: Ankylosing spondylitis
     Dosage: 500 MG 4 VOLTE AL GIORNO
     Route: 048
     Dates: start: 201602, end: 20230315

REACTIONS (3)
  - Ankylosing spondylitis [Recovering/Resolving]
  - Condition aggravated [Recovering/Resolving]
  - Off label use [Unknown]

NARRATIVE: CASE EVENT DATE: 20220427
